FAERS Safety Report 8146571-3 (Version None)
Quarter: 2012Q1

REPORT INFORMATION
  Report Type: 
  Country: None (occurrence: None)
  Receive Date: 20120217
  Receipt Date: 20110725
  Transmission Date: 20120608
  Serious: No
  Sender: FDA-Public Use
  Company Number: US-ABBOTT-11P-163-0841449-00

PATIENT
  Sex: Female

DRUGS (6)
  1. SIMCOR [Suspect]
     Indication: HIGH DENSITY LIPOPROTEIN DECREASED
  2. METOPROLOL TARTRATE [Concomitant]
     Indication: HYPERTENSION
  3. SIMCOR [Suspect]
     Indication: BLOOD CHOLESTEROL INCREASED
     Route: 048
     Dates: start: 20110201, end: 20110715
  4. PANTOCRIN [Concomitant]
     Indication: SUPPLEMENTATION THERAPY
  5. PANITROL [Concomitant]
     Indication: RHEUMATOID ARTHRITIS
  6. MULTI-VITAMINS [Concomitant]
     Indication: VITAMIN SUPPLEMENTATION

REACTIONS (1)
  - ABDOMINAL PAIN [None]
